FAERS Safety Report 4689937-6 (Version None)
Quarter: 2005Q2

REPORT INFORMATION
  Report Type: 
  Country: None (occurrence: None)
  Receive Date: 20050608
  Receipt Date: 20050204
  Transmission Date: 20051028
  Serious: No
  Sender: FDA-Public Use
  Company Number: 2005-BP-01843BP

PATIENT
  Age: 80 Year
  Sex: Male

DRUGS (8)
  1. SPIRIVA [Suspect]
     Indication: CHRONIC OBSTRUCTIVE PULMONARY DISEASE
     Dosage: 18 MCG (18 MCG, 1 IN 1 D), IH
     Route: 055
     Dates: start: 20050201
  2. COMBIVENT [Suspect]
     Indication: CHRONIC OBSTRUCTIVE PULMONARY DISEASE
     Dosage: 8 PUF (SEE TEXT), IH
     Route: 055
     Dates: end: 20050201
  3. ACETYLSALICYLIC ACID SRT [Concomitant]
  4. DIGOXIN [Concomitant]
  5. ZOCOR [Concomitant]
  6. ACIPHEX [Concomitant]
  7. ZANTC(RANITIDINE HYDROCHLORIDE) [Concomitant]
  8. DARVOCET [Concomitant]

REACTIONS (2)
  - NERVOUSNESS [None]
  - TREMOR [None]
